FAERS Safety Report 7225604-2 (Version None)
Quarter: 2011Q1

REPORT INFORMATION
  Report Type: 
  Country: None (occurrence: None)
  Receive Date: 20110107
  Receipt Date: 20110107
  Transmission Date: 20110831
  Serious: Yes (Life-Threatening)
  Sender: FDA-Public Use
  Company Number: None

PATIENT
  Sex: Male
  Weight: 69.4003 kg

DRUGS (1)
  1. NIASPAN [Suspect]
     Indication: BLOOD CHOLESTEROL
     Dosage: 1 BED-TIME
     Dates: start: 20101202, end: 20101211

REACTIONS (18)
  - ABNORMAL SENSATION IN EYE [None]
  - PAIN [None]
  - PALLOR [None]
  - MUSCLE SPASMS [None]
  - SKIN DISCOLOURATION [None]
  - CHEST PAIN [None]
  - HEART RATE INCREASED [None]
  - BALANCE DISORDER [None]
  - FATIGUE [None]
  - GASTRIC DISORDER [None]
  - EYE DISORDER [None]
  - ABDOMINAL PAIN UPPER [None]
  - CHEST DISCOMFORT [None]
  - DIPLOPIA [None]
  - ASTHENIA [None]
  - HEADACHE [None]
  - STRABISMUS [None]
  - LOSS OF CONSCIOUSNESS [None]
